FAERS Safety Report 10089969 (Version 1)
Quarter: 2014Q2

REPORT INFORMATION
  Report Type: Spontaneous
  Country: US (occurrence: US)
  Receive Date: 20140421
  Receipt Date: 20140421
  Transmission Date: 20141212
  Serious: No
  Sender: FDA-Public Use
  Company Number: US-ABBVIE-14P-163-1201276-00

PATIENT
  Sex: Female
  Weight: 34.8 kg

DRUGS (2)
  1. LUPRON DEPOT-PED [Suspect]
     Indication: PRECOCIOUS PUBERTY
     Route: 030
     Dates: start: 201208, end: 201301
  2. LUPRON DEPOT-PED [Suspect]
     Route: 030
     Dates: start: 201401

REACTIONS (5)
  - Bone disorder [Unknown]
  - Metrorrhagia [Unknown]
  - Drug ineffective [Recovered/Resolved]
  - Incorrect product storage [Recovered/Resolved]
  - Poor quality drug administered [Unknown]
